FAERS Safety Report 9208831 (Version 1)
Quarter: 2013Q2

REPORT INFORMATION
  Report Type: Spontaneous
  Country: US (occurrence: US)
  Receive Date: 20130404
  Receipt Date: 20130404
  Transmission Date: 20140414
  Serious: No
  Sender: FDA-Public Use
  Company Number: US-PFIZER INC-2013105627

PATIENT
  Age: 50 Year
  Sex: Male
  Weight: 87.08 kg

DRUGS (4)
  1. CHANTIX [Suspect]
     Indication: SMOKING CESSATION THERAPY
     Dosage: UNK
  2. CHANTIX [Suspect]
     Dosage: UNK
     Dates: start: 2012, end: 2012
  3. OXYCODONE [Concomitant]
     Dosage: 30 MG, 2X/DAY
  4. NORCO [Concomitant]
     Dosage: 10/325MG,4X/DAY

REACTIONS (2)
  - Circumstance or information capable of leading to medication error [Unknown]
  - Drug ineffective [Unknown]
